FAERS Safety Report 4865391-6 (Version None)
Quarter: 2005Q4

REPORT INFORMATION
  Report Type: 
  Country: None (occurrence: None)
  Receive Date: 20051223
  Receipt Date: 20051212
  Transmission Date: 20060501
  Serious: Yes (Hospitalization)
  Sender: FDA-Public Use
  Company Number: US-AMGEN-STX161010

PATIENT
  Sex: Female

DRUGS (4)
  1. ENBREL [Suspect]
     Indication: RHEUMATOID ARTHRITIS
     Dates: start: 20031201
  2. METHOTREXATE [Concomitant]
  3. ATENOLOL [Concomitant]
  4. ESTRACE [Concomitant]

REACTIONS (3)
  - BLOOD PRESSURE INCREASED [None]
  - INFECTION [None]
  - SMALL INTESTINAL OBSTRUCTION [None]
